FAERS Safety Report 10155313 (Version 1)
Quarter: 2014Q2

REPORT INFORMATION
  Report Type: Report from Study
  Country: BR (occurrence: BR)
  Receive Date: 20140506
  Receipt Date: 20140506
  Transmission Date: 20141212
  Serious: Yes (Other)
  Sender: FDA-Public Use
  Company Number: PHHY2014BR052756

PATIENT
  Sex: Male

DRUGS (1)
  1. SANDOSTATIN LAR (PATIENT BASIS) [Suspect]
     Dosage: UNK UKN, UNK

REACTIONS (2)
  - Tympanic membrane perforation [Unknown]
  - Hypoacusis [Unknown]
